FAERS Safety Report 8518389-0 (Version None)
Quarter: 2012Q3

REPORT INFORMATION
  Report Type: 
  Country: None (occurrence: None)
  Receive Date: 20120718
  Receipt Date: 20120717
  Transmission Date: 20120928
  Serious: Yes (Other)
  Sender: FDA-Public Use
  Company Number: US-GLAXOSMITHKLINE-A0984753A

PATIENT
  Age: 73 Year
  Sex: Female

DRUGS (1)
  1. NICORETTE [Suspect]
     Indication: NICOTINE DEPENDENCE
     Route: 002

REACTIONS (4)
  - BREAST CANCER [None]
  - NICOTINE DEPENDENCE [None]
  - INTENTIONAL DRUG MISUSE [None]
  - TOOTH DISCOLOURATION [None]
